FAERS Safety Report 23637212 (Version 1)
Quarter: 2024Q1

REPORT INFORMATION
  Report Type: Spontaneous
  Country: BR (occurrence: BR)
  Receive Date: 20240315
  Receipt Date: 20240315
  Transmission Date: 20240410
  Serious: Yes (Hospitalization, Other)
  Sender: FDA-Public Use
  Company Number: BR-JNJFOC-20240337688

PATIENT
  Sex: Male

DRUGS (1)
  1. HALOPERIDOL [Suspect]
     Active Substance: HALOPERIDOL
     Indication: Schizophrenia
     Route: 065

REACTIONS (6)
  - Psychotic disorder [Unknown]
  - Extrapyramidal disorder [Unknown]
  - Persecutory delusion [Unknown]
  - Disorganised speech [Unknown]
  - Treatment noncompliance [Unknown]
  - Drug intolerance [Unknown]
